FAERS Safety Report 11520957 (Version 1)
Quarter: 2015Q3

REPORT INFORMATION
  Report Type: Spontaneous
  Country: US (occurrence: None)
  Receive Date: 20150917
  Receipt Date: 20150917
  Transmission Date: 20151125
  Serious: Yes (Other)
  Sender: FDA-Public Use
  Company Number: None

PATIENT
  Age: 61 Year
  Sex: Male
  Weight: 86.18 kg

DRUGS (13)
  1. CHLORTHALIDONE [Concomitant]
  2. COQ10 [Concomitant]
  3. GLIPIZIDE ER [Concomitant]
  4. AMLODIPINE BESYLATE [Concomitant]
  5. BENICAR [Concomitant]
  6. MATURE MULTI VITAMIN [Concomitant]
  7. VITAMIN D3 [Concomitant]
  8. METFORMIN HCL [Concomitant]
  9. CLONIDINE [Concomitant]
  10. CHLORTHALIDONE (25 MG) [Suspect]
     Active Substance: CHLORTHALIDONE
     Route: 048
     Dates: start: 20150401, end: 20150620
  11. PRAVASTATIN [Concomitant]
  12. METOPROLOL [Concomitant]
  13. ASPIRIN [Concomitant]

REACTIONS (3)
  - Product quality issue [None]
  - Drug ineffective [None]
  - Drug level decreased [None]

NARRATIVE: CASE EVENT DATE: 20150615
